FAERS Safety Report 7497405-1 (Version None)
Quarter: 2011Q2

REPORT INFORMATION
  Report Type: 
  Country: None (occurrence: None)
  Receive Date: 20110516
  Receipt Date: 20110508
  Transmission Date: 20111010
  Serious: Yes (Other)
  Sender: FDA-Public Use
  Company Number: 2011SP021085

PATIENT
  Sex: Female

DRUGS (4)
  1. CORTISONE ACETATE [Concomitant]
  2. ACTONEL [Concomitant]
  3. METHOTTREXATE [Concomitant]
  4. NASONEX [Suspect]
     Indication: NASAL INFLAMMATION
     Dosage: 50 MCG; TID
     Dates: start: 20090202, end: 20090314

REACTIONS (5)
  - CONDITION AGGRAVATED [None]
  - INFLAMMATION [None]
  - NASAL TURBINATE ABNORMALITY [None]
  - DYSPHONIA [None]
  - EPISTAXIS [None]
